FAERS Safety Report 7981129-8 (Version None)
Quarter: 2011Q4

REPORT INFORMATION
  Report Type: 
  Country: None (occurrence: None)
  Receive Date: 20111215
  Receipt Date: 20111209
  Transmission Date: 20120403
  Serious: Yes (Hospitalization)
  Sender: FDA-Public Use
  Company Number: US-VERTEX PHARMACEUTICALS INC.-AE-2011-003778

PATIENT
  Sex: Female
  Weight: 57.204 kg

DRUGS (5)
  1. RIBAVIRIN [Concomitant]
     Indication: HEPATITIS C
     Route: 048
     Dates: start: 20111006, end: 20111116
  2. ACETAMINOPHEN [Concomitant]
     Route: 048
  3. TYLENOL PM [Concomitant]
     Route: 048
  4. INCIVEK [Suspect]
     Indication: HEPATITIS C
     Route: 048
     Dates: start: 20111006, end: 20111116
  5. PEGASYS [Concomitant]
     Indication: HEPATITIS C
     Dates: start: 20111006, end: 20111116

REACTIONS (4)
  - WEIGHT DECREASED [None]
  - ALOPECIA [None]
  - NAUSEA [None]
  - PANCREATITIS [None]
